FAERS Safety Report 7420242-0 (Version None)
Quarter: 2011Q2

REPORT INFORMATION
  Report Type: 
  Country: None (occurrence: None)
  Receive Date: 20110418
  Receipt Date: 20110405
  Transmission Date: 20111010
  Serious: Yes (Hospitalization, Other)
  Sender: FDA-Public Use
  Company Number: SE-JNJFOC-20110403187

PATIENT
  Age: 44 Year
  Sex: Female

DRUGS (4)
  1. HALDOL [Suspect]
     Route: 065
  2. HALDOL [Suspect]
     Route: 065
  3. HALDOL [Suspect]
     Route: 065
  4. HALDOL [Suspect]
     Indication: SCHIZOPHRENIA
     Route: 065

REACTIONS (5)
  - HOSPITALISATION [None]
  - HERPES ZOSTER [None]
  - ERYTHEMA [None]
  - DISTURBANCE IN SOCIAL BEHAVIOUR [None]
  - MEMORY IMPAIRMENT [None]
